FAERS Safety Report 7261852-3 (Version None)
Quarter: 2011Q1

REPORT INFORMATION
  Report Type: 
  Country: None (occurrence: None)
  Receive Date: 20110130
  Receipt Date: 20101209
  Transmission Date: 20110831
  Serious: Yes (Hospitalization, Other)
  Sender: FDA-Public Use
  Company Number: US-ABBOTT-10P-163-0691000-00

PATIENT
  Sex: Female

DRUGS (9)
  1. UNKNOWN STEROID [Concomitant]
     Indication: CROHN'S DISEASE
  2. HUMIRA [Suspect]
     Route: 058
     Dates: end: 20100301
  3. APRISO [Concomitant]
     Indication: CROHN'S DISEASE
  4. ENTOCORT EC [Concomitant]
     Indication: CROHN'S DISEASE
  5. REMICADE [Concomitant]
     Indication: CROHN'S DISEASE
     Dates: start: 20100301
  6. TARKA [Concomitant]
     Indication: HYPERTENSION
     Dosage: ONE TABLET IS 4/240
  7. PENTASA [Concomitant]
     Indication: CROHN'S DISEASE
  8. HUMIRA [Suspect]
     Route: 058
     Dates: start: 20101001
  9. HUMIRA [Suspect]
     Indication: CROHN'S DISEASE
     Dosage: PLANNED TO RESTART MEDICATION ON 10 DEC 2010.
     Route: 058
     Dates: start: 20101210

REACTIONS (1)
  - CROHN'S DISEASE [None]
